APPROVED DRUG PRODUCT: CYTADREN
Active Ingredient: AMINOGLUTETHIMIDE
Strength: 250MG
Dosage Form/Route: TABLET;ORAL
Application: N018202 | Product #001
Applicant: NOVARTIS PHARMACEUTICALS CORP
Approved: Approved Prior to Jan 1, 1982 | RLD: No | RS: No | Type: DISCN